FAERS Safety Report 12373524 (Version 2)
Quarter: 2016Q2

REPORT INFORMATION
  Report Type: Spontaneous
  Country: US (occurrence: US)
  Receive Date: 20160516
  Receipt Date: 20160627
  Transmission Date: 20160815
  Serious: Yes (Hospitalization)
  Sender: FDA-Public Use
  Company Number: US-ALLERGAN-1656614US

PATIENT
  Age: 53 Year
  Sex: Female
  Weight: 48.8 kg

DRUGS (10)
  1. ZOLOFT [Suspect]
     Active Substance: SERTRALINE HYDROCHLORIDE
     Indication: MAJOR DEPRESSION
     Dosage: 50 MG, QD
     Route: 048
     Dates: start: 201511, end: 201604
  2. ARMOUR THYROID [Concomitant]
     Active Substance: THYROID, PORCINE
     Indication: THYROID DISORDER
     Dosage: UNK
  3. SINGULAIR [Concomitant]
     Active Substance: MONTELUKAST SODIUM
     Indication: HYPERSENSITIVITY
     Dosage: UNK
  4. CYCLOBENZAPRINE [Concomitant]
     Active Substance: CYCLOBENZAPRINE
     Indication: MUSCLE RELAXANT THERAPY
     Dosage: UNK UNK, TID
  5. BENTYL [Suspect]
     Active Substance: DICYCLOMINE HYDROCHLORIDE
     Indication: IRRITABLE BOWEL SYNDROME
     Dosage: 40 MG, QPM
     Route: 048
  6. ALPRAZOLAM. [Concomitant]
     Active Substance: ALPRAZOLAM
     Indication: ANXIETY
     Dosage: UNK
  7. OMEPRAZOLE MAGNESIUM. [Concomitant]
     Active Substance: OMEPRAZOLE MAGNESIUM
     Indication: GASTROOESOPHAGEAL REFLUX DISEASE
     Dosage: UNK
  8. RANITIDINE HCI [Concomitant]
     Indication: GASTROOESOPHAGEAL REFLUX DISEASE
     Dosage: UNK
  9. BI EST [Concomitant]
     Indication: HORMONE REPLACEMENT THERAPY
     Dosage: UNK
  10. TEMAZEPAM. [Concomitant]
     Active Substance: TEMAZEPAM
     Indication: SLEEP DISORDER
     Dosage: 30 MG, QD
     Route: 048

REACTIONS (25)
  - Spinal fusion surgery [Recovered/Resolved with Sequelae]
  - Tremor [Not Recovered/Not Resolved]
  - Seizure [Unknown]
  - Muscle rigidity [Unknown]
  - Dysphonia [Not Recovered/Not Resolved]
  - Decreased appetite [Unknown]
  - Anger [Not Recovered/Not Resolved]
  - Renal impairment [Unknown]
  - Asterixis [Unknown]
  - Bone pain [Unknown]
  - Hypertensive crisis [Unknown]
  - Confusional state [Not Recovered/Not Resolved]
  - Apparent death [Unknown]
  - Toxicity to various agents [Unknown]
  - Dizziness [Unknown]
  - Psychotic behaviour [Recovered/Resolved]
  - Sunburn [Recovered/Resolved with Sequelae]
  - Agitation [Unknown]
  - Hallucination [Unknown]
  - Loss of consciousness [Unknown]
  - Eye movement disorder [Unknown]
  - Serotonin syndrome [Recovering/Resolving]
  - Drug withdrawal syndrome [Not Recovered/Not Resolved]
  - Diarrhoea [Unknown]
  - Hallucination, auditory [Unknown]

NARRATIVE: CASE EVENT DATE: 2016
